FAERS Safety Report 7607832-7 (Version None)
Quarter: 2011Q3

REPORT INFORMATION
  Report Type: 
  Country: None (occurrence: None)
  Receive Date: 20110714
  Receipt Date: 20110707
  Transmission Date: 20111222
  Serious: Yes (Hospitalization)
  Sender: FDA-Public Use
  Company Number: US-BIOGENIDEC-2011BI023734

PATIENT
  Age: 37 Year
  Sex: Female

DRUGS (2)
  1. TYSABRI [Suspect]
     Indication: MULTIPLE SCLEROSIS
     Route: 042
     Dates: start: 20080402
  2. AVONEX [Concomitant]
     Indication: MULTIPLE SCLEROSIS
     Dates: start: 20051117

REACTIONS (6)
  - MULTIPLE SCLEROSIS [None]
  - DERMATITIS ALLERGIC [None]
  - JUGULAR VEIN THROMBOSIS [None]
  - CENTRAL NERVOUS SYSTEM LESION [None]
  - DEVICE RELATED INFECTION [None]
  - MULTIPLE SCLEROSIS RELAPSE [None]
